FAERS Safety Report 19809324 (Version 1)
Quarter: 2021Q3

REPORT INFORMATION
  Report Type: Report from Study
  Country: DE (occurrence: DE)
  Receive Date: 20210908
  Receipt Date: 20210908
  Transmission Date: 20211014
  Serious: Yes (Other)
  Sender: FDA-Public Use
  Company Number: DE-PFIZER INC-202101112755

PATIENT
  Age: 38 Year
  Sex: Female
  Weight: 60.7 kg

DRUGS (5)
  1. IBUPROFEN. [Concomitant]
     Active Substance: IBUPROFEN
     Indication: RHEUMATOID ARTHRITIS
     Dosage: UP TO 1800 MG DAILY, AS NEEDED
     Route: 048
  2. XELJANZ [Suspect]
     Active Substance: TOFACITINIB CITRATE
     Indication: RHEUMATOID ARTHRITIS
     Dosage: 11 MG, 1X/DAY
     Dates: start: 20200805, end: 20210816
  3. METEX [METHOTREXATE SODIUM] [Suspect]
     Active Substance: METHOTREXATE SODIUM
     Indication: RHEUMATOID ARTHRITIS
     Dosage: 15 MG, WEEKLY
     Route: 058
     Dates: start: 20200227, end: 20210816
  4. FOLIC ACID. [Concomitant]
     Active Substance: FOLIC ACID
     Indication: PROPHYLAXIS
     Dosage: 5 MG, WEEKLY
     Route: 048
     Dates: start: 20200227
  5. PANTOPRAZOLE [Concomitant]
     Active Substance: PANTOPRAZOLE
     Indication: PROPHYLAXIS
     Dosage: 20 MG, DAILY
     Route: 048

REACTIONS (2)
  - Maternal exposure during pregnancy [Recovered/Resolved]
  - Abortion spontaneous [Recovered/Resolved]

NARRATIVE: CASE EVENT DATE: 20210705
